FAERS Safety Report 5235739-1 (Version None)
Quarter: 2007Q1

REPORT INFORMATION
  Report Type: 
  Country: None (occurrence: None)
  Receive Date: 20061208
  Receipt Date: 20051121
  Transmission Date: 20070707
  Serious: Yes (Other)
  Sender: FDA-Public Use
  Company Number: 2005UW17726

PATIENT
  Age: 60 Year
  Sex: Female

DRUGS (9)
  1. TOPROL-XL [Suspect]
  2. CRESTOR [Suspect]
     Dosage: 5 MG PO
     Route: 048
     Dates: start: 20051029
  3. SYNTHROID [Concomitant]
  4. HYZAAR [Concomitant]
  5. LOTREL [Concomitant]
  6. PREVACID [Concomitant]
  7. ARTHROTEC [Concomitant]
  8. POTASSIUM ACETATE [Concomitant]
  9. NASACORT [Concomitant]

REACTIONS (1)
  - MYALGIA [None]
